FAERS Safety Report 9307963 (Version 3)
Quarter: 2013Q3

REPORT INFORMATION
  Report Type: Report from Study
  Country: BR (occurrence: BR)
  Receive Date: 20130524
  Receipt Date: 20130819
  Transmission Date: 20140515
  Serious: Yes (Hospitalization, Other)
  Sender: FDA-Public Use
  Company Number: BR-ROCHE-1227284

PATIENT
  Sex: Male
  Weight: 78 kg

DRUGS (1)
  1. ACTEMRA [Suspect]
     Indication: RHEUMATOID ARTHRITIS
     Dosage: LAST INFUSION ON DEC-2012
     Route: 065
     Dates: start: 201303

REACTIONS (7)
  - Synovial cyst [Recovered/Resolved]
  - Nephrolithiasis [Not Recovered/Not Resolved]
  - Synovial rupture [Recovered/Resolved]
  - Arthritis [Recovered/Resolved]
  - Renal colic [Recovered/Resolved]
  - Rheumatoid arthritis [Not Recovered/Not Resolved]
  - Osteoarthritis [Unknown]
